FAERS Safety Report 5862428-2 (Version None)
Quarter: 2008Q3

REPORT INFORMATION
  Report Type: 
  Country: None (occurrence: None)
  Receive Date: 20080826
  Receipt Date: 20080819
  Transmission Date: 20090109
  Serious: Yes (Death)
  Sender: FDA-Public Use
  Company Number: TCI2008A03975

PATIENT
  Age: 86 Year
  Sex: Male

DRUGS (5)
  1. LANSOPRAZOLE [Suspect]
     Dosage: 15 MG (15 MG, 1 IN 1 D) PER ORAL
     Route: 048
     Dates: end: 20080730
  2. LAC B (LACTOBACILLUS BIFIDUS, LYOPHILIZED) (POWDER) [Concomitant]
  3. MUCODYNE DS (CARBOCISTEINE) (DRY SYRUP) [Concomitant]
  4. CLARITH DRY SYRUP (CLARITHROMYCIN) (DRY SYRUP) [Concomitant]
  5. HOKUNALIN TAPE (TULOBUTEROL HYDROCHLORIDE) (POULTICE OR PATCH) [Concomitant]

REACTIONS (6)
  - IMMUNODEFICIENCY [None]
  - MULTI-ORGAN FAILURE [None]
  - PNEUMONIA ASPIRATION [None]
  - RESPIRATORY FAILURE [None]
  - SEPTIC SHOCK [None]
  - WHITE BLOOD CELL COUNT DECREASED [None]
